FAERS Safety Report 19786675 (Version 1)
Quarter: 2021Q3

REPORT INFORMATION
  Report Type: Spontaneous
  Country: CA (occurrence: CA)
  Receive Date: 20210903
  Receipt Date: 20210903
  Transmission Date: 20211014
  Serious: Yes (Other)
  Sender: FDA-Public Use
  Company Number: CA-TEVA-2021-CA-1947492

PATIENT
  Age: 81 Year
  Sex: Male
  Weight: 60 kg

DRUGS (4)
  1. CARBOPLATIN INJECTION [Suspect]
     Active Substance: CARBOPLATIN
     Indication: CHEMOTHERAPY
     Route: 042
  2. DEXAMETHASONE. [Concomitant]
     Active Substance: DEXAMETHASONE
  3. GRANISETRON [Concomitant]
     Active Substance: GRANISETRON
  4. FOLIC ACID. [Concomitant]
     Active Substance: FOLIC ACID

REACTIONS (6)
  - Limb injury [Unknown]
  - Restlessness [Unknown]
  - Flushing [Unknown]
  - Peripheral swelling [Unknown]
  - Dyspnoea [Unknown]
  - Hypotension [Unknown]
